FAERS Safety Report 19923169 (Version 3)
Quarter: 2021Q4

REPORT INFORMATION
  Report Type: Spontaneous
  Country: FR (occurrence: FR)
  Receive Date: 20211005
  Receipt Date: 20211025
  Transmission Date: 20220303
  Serious: Yes (Hospitalization, Other)
  Sender: FDA-Public Use
  Company Number: NVSC2021FR223746

PATIENT
  Age: 66 Year
  Sex: Male

DRUGS (20)
  1. METFORMIN [Suspect]
     Active Substance: METFORMIN HYDROCHLORIDE
     Indication: Type 2 diabetes mellitus
     Dosage: UNK
     Route: 065
     Dates: start: 2014, end: 2020
  2. LOSARTAN [Concomitant]
     Active Substance: LOSARTAN
     Indication: Hypertension
     Dosage: UNK
     Route: 065
     Dates: start: 2014
  3. HYDROCHLOROTHIAZIDE [Concomitant]
     Active Substance: HYDROCHLOROTHIAZIDE
     Indication: Hypertension
     Dosage: UNK
     Route: 065
     Dates: start: 2014
  4. ATORVASTATIN [Concomitant]
     Active Substance: ATORVASTATIN
     Indication: Dyslipidaemia
     Dosage: UNK
     Route: 065
     Dates: start: 2014
  5. ASPIRIN [Concomitant]
     Active Substance: ASPIRIN
     Indication: Product used for unknown indication
     Dosage: UNK
     Route: 065
     Dates: start: 2014
  6. METHOTREXATE [Concomitant]
     Active Substance: METHOTREXATE
     Indication: Psoriatic arthropathy
     Dosage: UNK
     Route: 048
     Dates: start: 2016, end: 2020
  7. METHOTREXATE [Concomitant]
     Active Substance: METHOTREXATE
     Dosage: 22.5 MG, QW INJECTABLE VIA A PEN
     Route: 065
     Dates: start: 2016, end: 2020
  8. FOLIC ACID [Concomitant]
     Active Substance: FOLIC ACID
     Indication: Vitamin supplementation
     Dosage: UNK
     Route: 065
  9. CALCIPOTRIENE AND BETAMETHASONE DIPROPIONATE [Concomitant]
     Active Substance: BETAMETHASONE DIPROPIONATE\CALCIPOTRIENE
     Indication: Psoriatic arthropathy
     Dosage: UNK
     Route: 061
     Dates: start: 2019
  10. LIDOCAINE [Concomitant]
     Active Substance: LIDOCAINE
     Indication: Mouth ulceration
     Dosage: UNK
     Route: 048
     Dates: start: 2020
  11. LIDOCAINE [Concomitant]
     Active Substance: LIDOCAINE
     Indication: Mucosal toxicity
  12. SODIUM BICARBONATE [Concomitant]
     Active Substance: SODIUM BICARBONATE
     Indication: Mouth ulceration
     Dosage: UNK
     Route: 048
     Dates: start: 2020
  13. SODIUM BICARBONATE [Concomitant]
     Active Substance: SODIUM BICARBONATE
     Indication: Mucosal toxicity
  14. SALICYLIC ACID [Concomitant]
     Active Substance: SALICYLIC ACID
     Indication: Mouth ulceration
     Dosage: UNK
     Route: 048
     Dates: start: 2020
  15. SALICYLIC ACID [Concomitant]
     Active Substance: SALICYLIC ACID
     Indication: Mucosal toxicity
  16. GRANULOCYTE COLONY-STIMULATING FACTOR NOS [Concomitant]
     Active Substance: GRANULOCYTE COLONY-STIMULATING FACTOR NOS
     Indication: Pancytopenia
     Dosage: UNK
     Route: 065
     Dates: start: 2020
  17. GRANULOCYTE COLONY-STIMULATING FACTOR NOS [Concomitant]
     Active Substance: GRANULOCYTE COLONY-STIMULATING FACTOR NOS
     Indication: Agranulocytosis
  18. FILGRASTIM [Concomitant]
     Active Substance: FILGRASTIM
     Indication: Pancytopenia
     Dosage: UNK
     Route: 065
     Dates: start: 2020
  19. FILGRASTIM [Concomitant]
     Active Substance: FILGRASTIM
     Indication: Agranulocytosis
  20. LEUCOVORIN [Concomitant]
     Active Substance: LEUCOVORIN
     Indication: Supplementation therapy
     Dosage: UNK
     Route: 065
     Dates: start: 2020

REACTIONS (3)
  - Acute kidney injury [Recovered/Resolved]
  - Renal tubular necrosis [Recovered/Resolved]
  - Metabolic acidosis [Recovered/Resolved]

NARRATIVE: CASE EVENT DATE: 20200101
